FAERS Safety Report 17163413 (Version 1)
Quarter: 2019Q4

REPORT INFORMATION
  Report Type: Spontaneous
  Country: JP (occurrence: JP)
  Receive Date: 20191217
  Receipt Date: 20191217
  Transmission Date: 20200122
  Serious: Yes (Other)
  Sender: FDA-Public Use
  Company Number: JP-009507513-1912JPN001997J

PATIENT
  Age: 66 Year
  Sex: Male

DRUGS (2)
  1. KEYTRUDA [Suspect]
     Active Substance: PEMBROLIZUMAB
     Indication: NON-SMALL CELL LUNG CANCER
     Dosage: 200 MILLIGRAM, Q3W
     Route: 041
  2. NAPROXEN. [Concomitant]
     Active Substance: NAPROXEN
     Dosage: UNK
     Route: 065

REACTIONS (1)
  - Acute kidney injury [Recovered/Resolved]
